FAERS Safety Report 6419138-2 (Version None)
Quarter: 2009Q4

REPORT INFORMATION
  Report Type: 
  Country: None (occurrence: None)
  Receive Date: 20091027
  Receipt Date: 20091014
  Transmission Date: 20100525
  Serious: Yes (Other)
  Sender: FDA-Public Use
  Company Number: IDA-00277

PATIENT
  Age: 25 Year
  Sex: Male

DRUGS (1)
  1. PROPRANOLOL [Suspect]
     Dosage: 20 MG Q8H, PER ORAL
     Route: 048

REACTIONS (9)
  - ACINETOBACTER INFECTION [None]
  - BEDRIDDEN [None]
  - COLONIC PSEUDO-OBSTRUCTION [None]
  - FAILURE TO THRIVE [None]
  - PSEUDOMONAS INFECTION [None]
  - SEPSIS [None]
  - SKIN GRAFT REJECTION [None]
  - TACHYCARDIA [None]
  - WEIGHT DECREASED [None]
